FAERS Safety Report 17209400 (Version 2)
Quarter: 2020Q2

REPORT INFORMATION
  Report Type: Spontaneous
  Country: GB (occurrence: GB)
  Receive Date: 20191227
  Receipt Date: 20200501
  Transmission Date: 20200713
  Serious: Yes (Other)
  Sender: FDA-Public Use
  Company Number: GB-MYLANLABS-2019M1127808

PATIENT

DRUGS (1)
  1. CLARITHROMYCIN. [Suspect]
     Active Substance: CLARITHROMYCIN
     Indication: COUGH
     Dosage: UNK

REACTIONS (4)
  - Dyspnoea [Unknown]
  - Nasal polyps [Unknown]
  - Swelling [Unknown]
  - Pneumonia viral [Unknown]
